FAERS Safety Report 5225657-7 (Version None)
Quarter: 2007Q1

REPORT INFORMATION
  Report Type: 
  Country: None (occurrence: None)
  Receive Date: 20061201
  Receipt Date: 20061109
  Transmission Date: 20070707
  Serious: No
  Sender: FDA-Public Use
  Company Number: US200512004398

PATIENT
  Age: 54 Year
  Sex: Female
  Weight: 77.1 kg

DRUGS (14)
  1. CYMBALTA [Suspect]
     Indication: BONE PAIN
     Dosage: SEE IMAGE
     Route: 048
     Dates: start: 20051028, end: 20051102
  2. CYMBALTA [Suspect]
     Indication: BONE PAIN
     Dosage: SEE IMAGE
     Route: 048
     Dates: start: 20051103, end: 20051107
  3. CYMBALTA [Suspect]
     Indication: BONE PAIN
     Dosage: SEE IMAGE
     Route: 048
     Dates: start: 20051108, end: 20051111
  4. ASPIRIN [Concomitant]
  5. WELLBUTRIN [Concomitant]
  6. PLAVIX [Concomitant]
  7. SYNTHROID [Concomitant]
  8. COZAAR [Concomitant]
  9. PROTONIX [Concomitant]
  10. METFORMIN HCL [Concomitant]
  11. ZOLOFT [Concomitant]
  12. XANAX /USA/ (ALPRAZOLAM) [Concomitant]
  13. EXCEDRIN P.M. (DIPHENHYDRAMINE CITRATE, PARACETAMOL) [Concomitant]
  14. VICODIN [Concomitant]

REACTIONS (9)
  - ASTHENIA [None]
  - BALANCE DISORDER [None]
  - DYSARTHRIA [None]
  - FALL [None]
  - GAIT DISTURBANCE [None]
  - HEAD INJURY [None]
  - HYPERSOMNIA [None]
  - MALAISE [None]
  - SOMNOLENCE [None]
